FAERS Safety Report 6166382-8 (Version None)
Quarter: 2009Q2

REPORT INFORMATION
  Report Type: 
  Country: None (occurrence: None)
  Receive Date: 20090424
  Receipt Date: 20080930
  Transmission Date: 20091009
  Serious: No
  Sender: FDA-Public Use
  Company Number: A0750782A

PATIENT
  Sex: Female

DRUGS (1)
  1. DEXEDRINE [Suspect]
     Indication: DRUG USE FOR UNKNOWN INDICATION
     Route: 065

REACTIONS (1)
  - NERVOUSNESS [None]
